FAERS Safety Report 8067940-6 (Version None)
Quarter: 2012Q1

REPORT INFORMATION
  Report Type: 
  Country: None (occurrence: None)
  Receive Date: 20120124
  Receipt Date: 20110831
  Transmission Date: 20120608
  Serious: No
  Sender: FDA-Public Use
  Company Number: US-AMGEN-USASP2011044754

PATIENT
  Age: 80 Year
  Sex: Female

DRUGS (8)
  1. ZOLOFT [Concomitant]
  2. PREVACID [Concomitant]
  3. ASPIRIN [Concomitant]
  4. EXFORGE [Concomitant]
  5. VITAMIN D [Concomitant]
  6. CALTRATE                           /00751519/ [Concomitant]
  7. PROLIA [Suspect]
     Indication: OSTEOPOROSIS POSTMENOPAUSAL
     Dosage: 60 MG, Q6MO
     Dates: start: 20110101
  8. CRESTOR [Concomitant]

REACTIONS (3)
  - BACK PAIN [None]
  - NECK PAIN [None]
  - PAIN IN EXTREMITY [None]
